FAERS Safety Report 13422288 (Version 1)
Quarter: 2017Q2

REPORT INFORMATION
  Report Type: Spontaneous
  Country: US (occurrence: US)
  Receive Date: 20170407
  Receipt Date: 20170407
  Transmission Date: 20170830
  Serious: No
  Sender: FDA-Public Use
  Company Number: None

PATIENT
  Age: 35 Year
  Sex: Female
  Weight: 97.2 kg

DRUGS (5)
  1. DEPLIN [Concomitant]
     Active Substance: LEVOMEFOLATE CALCIUM
  2. METRONIDAZOLE 500 MG TAB [Suspect]
     Active Substance: METRONIDAZOLE
     Indication: VAGINAL PH ABNORMAL
     Route: 048
     Dates: start: 20170405, end: 20170407
  3. OMEPRAZOLE. [Concomitant]
     Active Substance: OMEPRAZOLE
  4. CITRAZINE [Concomitant]
  5. FLECTOR [Concomitant]
     Active Substance: DICLOFENAC EPOLAMINE

REACTIONS (6)
  - Diarrhoea [None]
  - Nausea [None]
  - Insomnia [None]
  - Motion sickness [None]
  - Migraine [None]
  - Dizziness [None]

NARRATIVE: CASE EVENT DATE: 20170406
